FAERS Safety Report 8363190-4 (Version None)
Quarter: 2012Q2

REPORT INFORMATION
  Report Type: 
  Country: None (occurrence: None)
  Receive Date: 20120516
  Receipt Date: 20111115
  Transmission Date: 20120825
  Serious: No
  Sender: FDA-Public Use
  Company Number: US-ALEXION-A201101741

PATIENT
  Sex: Male
  Weight: 69.841 kg

DRUGS (7)
  1. TYLENOL (CAPLET) [Concomitant]
     Dosage: 650 MG, UNK
     Route: 048
  2. SOLIRIS [Suspect]
     Indication: PAROXYSMAL NOCTURNAL HAEMOGLOBINURIA
     Dosage: 600 MG, QW
     Route: 042
     Dates: start: 20110601
  3. BENADRYL [Concomitant]
     Dosage: 25 MG, UNK
     Route: 042
  4. IRON [Concomitant]
     Dosage: UNK, QD
  5. SOLIRIS [Suspect]
     Dosage: 900 MG, Q2W
     Route: 042
     Dates: start: 20110629
  6. PREDNISONE [Concomitant]
     Dosage: 10 MG, QD
  7. FOLIC ACID [Concomitant]
     Dosage: 1 MG, QD

REACTIONS (2)
  - TOOTH DISCOLOURATION [None]
  - MUSCLE SPASMS [None]
